FAERS Safety Report 6182607-7 (Version None)
Quarter: 2009Q2

REPORT INFORMATION
  Report Type: 
  Country: None (occurrence: None)
  Receive Date: 20090507
  Receipt Date: 20090430
  Transmission Date: 20091009
  Serious: Yes (Other)
  Sender: FDA-Public Use
  Company Number: PHEH2009US04267

PATIENT
  Sex: Female

DRUGS (4)
  1. GLEEVEC [Suspect]
     Dosage: 400 MG, QD
     Route: 048
     Dates: start: 20090221
  2. LEVOTHYROXINE SODIUM [Concomitant]
  3. AMBIEN [Concomitant]
  4. ZOFRAN [Concomitant]

REACTIONS (1)
  - HYPOTHYROIDISM [None]
